FAERS Safety Report 7198608-6 (Version None)
Quarter: 2010Q4

REPORT INFORMATION
  Report Type: 
  Country: None (occurrence: None)
  Receive Date: 20101227
  Receipt Date: 20100727
  Transmission Date: 20110411
  Serious: No
  Sender: FDA-Public Use
  Company Number: US-ABBOTT-10P-163-0660188-00

PATIENT
  Sex: Male
  Weight: 86.714 kg

DRUGS (2)
  1. LUPRON [Suspect]
     Indication: PROSTATE CANCER
     Dosage: 4 MONTH DOSE EVER 6 MONTHS
     Dates: start: 20080201
  2. DECLINED LIST [Concomitant]
     Indication: PRODUCT USED FOR UNKNOWN INDICATION

REACTIONS (2)
  - HOT FLUSH [None]
  - PROSTATIC SPECIFIC ANTIGEN INCREASED [None]
